FAERS Safety Report 19923748 (Version 1)
Quarter: 2021Q4

REPORT INFORMATION
  Report Type: Spontaneous
  Country: US (occurrence: US)
  Receive Date: 20211006
  Receipt Date: 20211006
  Transmission Date: 20220303
  Serious: No
  Sender: FDA-Public Use
  Company Number: US-PFIZER INC-2019412634

PATIENT
  Age: 61 Year
  Sex: Male
  Weight: 79.82 kg

DRUGS (1)
  1. LYRICA [Suspect]
     Active Substance: PREGABALIN
     Indication: Cervical radiculopathy
     Dosage: 75 MG, 2X/DAY
     Route: 048

REACTIONS (2)
  - Headache [Unknown]
  - Intentional product misuse [Unknown]
